FAERS Safety Report 4807258-5 (Version None)
Quarter: 2005Q4

REPORT INFORMATION
  Report Type: 
  Country: None (occurrence: None)
  Receive Date: 20051020
  Receipt Date: 20051007
  Transmission Date: 20060501
  Serious: Yes (Death)
  Sender: FDA-Public Use
  Company Number: S05-UKI-03794-01

PATIENT
  Sex: Female

DRUGS (1)
  1. CITALOPRAM HYDROBROMIDE [Suspect]
     Dosage: UNK
     Route: 065

REACTIONS (2)
  - ANTIDEPRESSANT DRUG LEVEL INCREASED [None]
  - SUDDEN DEATH [None]
